FAERS Safety Report 11704449 (Version 1)
Quarter: 2015Q4

REPORT INFORMATION
  Report Type: Spontaneous
  Country: US (occurrence: US)
  Receive Date: 20151106
  Receipt Date: 20151106
  Transmission Date: 20160304
  Serious: No
  Sender: FDA-Public Use
  Company Number: US-PFIZER INC-2015339911

PATIENT
  Age: 31 Year
  Sex: Female

DRUGS (1)
  1. SUTENT [Suspect]
     Active Substance: SUNITINIB MALATE
     Indication: NEOPLASM MALIGNANT
     Dosage: 50 MG, 1 CAPSULE EVERY DAY FOR 4 WEEKS ON AND 2 WEEKS OFF
     Route: 048
     Dates: start: 201412

REACTIONS (2)
  - Pain in extremity [Unknown]
  - Blister [Unknown]
